FAERS Safety Report 19376903 (Version 3)
Quarter: 2021Q3

REPORT INFORMATION
  Report Type: Spontaneous
  Country: AR (occurrence: AR)
  Receive Date: 20210604
  Receipt Date: 20210806
  Transmission Date: 20211014
  Serious: Yes (Hospitalization, Other)
  Sender: FDA-Public Use
  Company Number: NVSC2021AR125267

PATIENT
  Sex: Female

DRUGS (8)
  1. ANAFRANIL [Suspect]
     Active Substance: CLOMIPRAMINE HYDROCHLORIDE
     Indication: PANIC ATTACK
     Dosage: UNK, QD (1 OF 25 MG, AT NIGHT)
     Route: 065
     Dates: start: 201710, end: 201806
  2. ANAFRANIL [Suspect]
     Active Substance: CLOMIPRAMINE HYDROCHLORIDE
     Indication: SOMNOLENCE
     Dosage: 0.5 DF (STARTED 1 YEAR AGO OR A LITTLE MORE), QD (1/2 OF 75 MG DAILY)
     Route: 065
  3. ANAFRANIL [Suspect]
     Active Substance: CLOMIPRAMINE HYDROCHLORIDE
     Dosage: UNK, QD (1/2 OF 75 MG)
     Route: 065
     Dates: start: 202103
  4. ANAFRANIL [Suspect]
     Active Substance: CLOMIPRAMINE HYDROCHLORIDE
     Indication: AGORAPHOBIA
     Dosage: 25 MG, QD (1 TABLET AT NIGHT)
     Route: 065
  5. ANAFRANIL [Suspect]
     Active Substance: CLOMIPRAMINE HYDROCHLORIDE
     Dosage: 75 MG, UNKNOWN
     Route: 065
  6. ANAFRANIL [Suspect]
     Active Substance: CLOMIPRAMINE HYDROCHLORIDE
     Dosage: UNK, QD (1 OF 25 MG)
     Route: 065
     Dates: start: 202012
  7. ANAFRANIL [Suspect]
     Active Substance: CLOMIPRAMINE HYDROCHLORIDE
     Indication: CRYING
     Dosage: 25 MG (STARTED 3 YEARS AGO), QD (1 TABLET AT NIGHT)
     Route: 065
  8. ANAFRANIL [Suspect]
     Active Substance: CLOMIPRAMINE HYDROCHLORIDE
     Indication: FEAR
     Dosage: 25 MG, QD (1 TABLET AT NIGHT)
     Route: 065
     Dates: start: 197510

REACTIONS (14)
  - Nervousness [Recovering/Resolving]
  - Limb discomfort [Unknown]
  - Product use in unapproved indication [Unknown]
  - Fatigue [Unknown]
  - Product availability issue [Unknown]
  - Tremor [Recovering/Resolving]
  - Discomfort [Unknown]
  - Feeling abnormal [Recovering/Resolving]
  - Crying [Recovering/Resolving]
  - Cholinergic syndrome [Unknown]
  - Depressive symptom [Recovered/Resolved]
  - Anxiety [Unknown]
  - Feeling of despair [Unknown]
  - Malaise [Unknown]
